FAERS Safety Report 4410661-9 (Version None)
Quarter: 2004Q3

REPORT INFORMATION
  Report Type: 
  Country: None (occurrence: None)
  Receive Date: 20040726
  Receipt Date: 20040713
  Transmission Date: 20050211
  Serious: Yes (Death, Hospitalization)
  Sender: FDA-Public Use
  Company Number: 04P-056-0263301-00

PATIENT
  Age: 75 Year
  Sex: Female

DRUGS (7)
  1. HUMIRA [Suspect]
     Indication: RHEUMATOID ARTHRITIS
     Dosage: 40 MG, 2 IN 1 M, SUBCUTANEOUS
     Route: 058
     Dates: start: 20030915, end: 20031215
  2. INFLIXIMAB [Suspect]
     Indication: CONDITION AGGRAVATED
     Dosage: 50 MG/KG, TOTAL OF 2 INFUSIONS, INTRAVENOUS
     Route: 042
     Dates: start: 20031229, end: 20040112
  3. INFLIXIMAB [Suspect]
     Indication: RHEUMATOID ARTHRITIS
     Dosage: 50 MG/KG, TOTAL OF 2 INFUSIONS, INTRAVENOUS
     Route: 042
     Dates: start: 20031229, end: 20040112
  4. PREDNISOLONE [Concomitant]
  5. LEFLUNOMIDE [Concomitant]
  6. ETANERCEPT [Concomitant]
  7. METHOTREXATE [Concomitant]

REACTIONS (14)
  - COMA [None]
  - CYSTITIS [None]
  - DISSEMINATED TUBERCULOSIS [None]
  - FAECAL INCONTINENCE [None]
  - GENERAL PHYSICAL CONDITION ABNORMAL [None]
  - HYPERAESTHESIA [None]
  - HYPERCALCAEMIA [None]
  - MOTOR DYSFUNCTION [None]
  - MULTI-ORGAN FAILURE [None]
  - PLEURAL EFFUSION [None]
  - POLYURIA [None]
  - PULMONARY EMBOLISM [None]
  - RHEUMATOID ARTHRITIS [None]
  - URINARY INCONTINENCE [None]
